FAERS Safety Report 13466079 (Version 1)
Quarter: 2017Q2

REPORT INFORMATION
  Report Type: Spontaneous
  Country: US (occurrence: US)
  Receive Date: 20170421
  Receipt Date: 20170421
  Transmission Date: 20170830
  Serious: No
  Sender: FDA-Public Use
  Company Number: US-PFIZER INC-2017172942

PATIENT
  Sex: Female

DRUGS (1)
  1. XELJANZ [Suspect]
     Active Substance: TOFACITINIB CITRATE
     Dosage: 5 MG, UNK

REACTIONS (12)
  - Paraesthesia [Unknown]
  - Synovitis [Unknown]
  - Decreased appetite [Unknown]
  - Hypertension [Unknown]
  - Joint swelling [Unknown]
  - Peripheral swelling [Unknown]
  - Dry mouth [Unknown]
  - Dry eye [Unknown]
  - Hypoaesthesia [Unknown]
  - Joint range of motion decreased [Unknown]
  - Joint dislocation [Unknown]
  - Fatigue [Unknown]
